FAERS Safety Report 14831403 (Version 5)
Quarter: 2019Q2

REPORT INFORMATION
  Report Type: Spontaneous
  Country: US (occurrence: US)
  Receive Date: 20180501
  Receipt Date: 20190424
  Transmission Date: 20190711
  Serious: Yes (Other)
  Sender: FDA-Public Use
  Company Number: US-ASTRAZENECA-2018SE50268

PATIENT
  Age: 66 Year
  Sex: Female
  Weight: 65.8 kg

DRUGS (26)
  1. NEXIUM 24HR [Suspect]
     Active Substance: ESOMEPRAZOLE MAGNESIUM
     Route: 048
  2. RANEXA [Concomitant]
     Active Substance: RANOLAZINE
  3. BIOTIN [Concomitant]
     Active Substance: BIOTIN
  4. PREVACID 24 HR [Suspect]
     Active Substance: LANSOPRAZOLE
     Route: 065
  5. VITAMIN B12 [Concomitant]
     Active Substance: CYANOCOBALAMIN
     Indication: GENERAL PHYSICAL HEALTH DETERIORATION
  6. PREVACID [Suspect]
     Active Substance: LANSOPRAZOLE
     Route: 065
  7. TAZORAC [Concomitant]
     Active Substance: TAZAROTENE
  8. MELOXICAM. [Concomitant]
     Active Substance: MELOXICAM
     Indication: ARTHRITIS
  9. PRILOSEC [Suspect]
     Active Substance: OMEPRAZOLE MAGNESIUM
     Route: 048
  10. RANITIDINE. [Concomitant]
     Active Substance: RANITIDINE
  11. PROTONIX [Suspect]
     Active Substance: PANTOPRAZOLE SODIUM
     Route: 065
  12. MELOXICAM. [Concomitant]
     Active Substance: MELOXICAM
  13. ADVAIR HFA [Concomitant]
     Active Substance: FLUTICASONE PROPIONATE\SALMETEROL XINAFOATE
  14. NEXIUM [Suspect]
     Active Substance: ESOMEPRAZOLE MAGNESIUM
     Indication: GASTROOESOPHAGEAL REFLUX DISEASE
     Route: 048
     Dates: end: 2015
  15. ASPIRIN. [Concomitant]
     Active Substance: ASPIRIN
     Indication: CARDIAC DISORDER
  16. FOLIC ACID. [Concomitant]
     Active Substance: FOLIC ACID
  17. PRILOSEC OTC [Suspect]
     Active Substance: OMEPRAZOLE MAGNESIUM
     Route: 048
  18. LISINOPRIL. [Concomitant]
     Active Substance: LISINOPRIL
  19. BUPROPION. [Concomitant]
     Active Substance: BUPROPION
     Indication: DEPRESSION
  20. DEXILANT [Suspect]
     Active Substance: DEXLANSOPRAZOLE
     Indication: GASTROOESOPHAGEAL REFLUX DISEASE
     Route: 065
     Dates: start: 2015
  21. RANITIDINE. [Concomitant]
     Active Substance: RANITIDINE
  22. ALPRAZOLAM. [Concomitant]
     Active Substance: ALPRAZOLAM
  23. METHOTREXATE. [Concomitant]
     Active Substance: METHOTREXATE
  24. ALPRAZOLAM. [Concomitant]
     Active Substance: ALPRAZOLAM
     Indication: ANXIETY
  25. BUPROPION. [Concomitant]
     Active Substance: BUPROPION
     Indication: ANXIETY
  26. MAGNESIUM [Concomitant]
     Active Substance: MAGNESIUM
     Indication: RESTLESS LEGS SYNDROME

REACTIONS (4)
  - Rebound acid hypersecretion [Unknown]
  - Renal failure [Recovered/Resolved]
  - Renal injury [Unknown]
  - Chronic kidney disease [Recovered/Resolved]

NARRATIVE: CASE EVENT DATE: 2015
